FAERS Safety Report 9647574 (Version 1)
Quarter: 2013Q4

REPORT INFORMATION
  Report Type: Spontaneous
  Country: US (occurrence: US)
  Receive Date: 20131028
  Receipt Date: 20131028
  Transmission Date: 20140711
  Serious: Yes (Death)
  Sender: FDA-Public Use
  Company Number: US-BIOGENIDEC-2013BI101147

PATIENT
  Age: 50 Year
  Sex: Female

DRUGS (2)
  1. TYSABRI [Suspect]
     Indication: MULTIPLE SCLEROSIS
     Route: 042
     Dates: start: 20090209, end: 20100125
  2. AVONEX [Concomitant]
     Indication: MULTIPLE SCLEROSIS
     Route: 030
     Dates: start: 20011025

REACTIONS (6)
  - Multiple sclerosis [Fatal]
  - Respiratory failure [Fatal]
  - Respiratory arrest [Fatal]
  - General symptom [Fatal]
  - Foreign body [Fatal]
  - Foreign body aspiration [Fatal]
